FAERS Safety Report 6525044-5 (Version None)
Quarter: 2010Q1

REPORT INFORMATION
  Report Type: 
  Country: None (occurrence: None)
  Receive Date: 20100104
  Receipt Date: 20091224
  Transmission Date: 20100710
  Serious: Yes (Other)
  Sender: FDA-Public Use
  Company Number: CA-SP-2009-05692

PATIENT
  Age: 30 Year
  Sex: Female

DRUGS (1)
  1. TUBERSOL [Suspect]
     Indication: IMMUNISATION
     Route: 023
     Dates: start: 20091221

REACTIONS (4)
  - INJECTION SITE ERYTHEMA [None]
  - INJECTION SITE PRURITUS [None]
  - PRURITUS [None]
  - SWOLLEN TONGUE [None]
